FAERS Safety Report 6952399-X (Version None)
Quarter: 2010Q3

REPORT INFORMATION
  Report Type: 
  Country: None (occurrence: None)
  Receive Date: 20100829
  Receipt Date: 20100430
  Transmission Date: 20110219
  Serious: No
  Sender: FDA-Public Use
  Company Number: US-ABBOTT-10P-163-0642506-00

PATIENT
  Sex: Male
  Weight: 59.02 kg

DRUGS (2)
  1. NIASPAN [Suspect]
     Indication: HIGH DENSITY LIPOPROTEIN DECREASED
     Dates: start: 20091001
  2. NIASPAN [Suspect]
     Dosage: DOSE INCREASED TO 2500MG OVER 5 MONTHS
     Dates: end: 20100329

REACTIONS (2)
  - RETINAL OEDEMA [None]
  - VISUAL IMPAIRMENT [None]
